FAERS Safety Report 10007909 (Version 3)
Quarter: 2014Q1

REPORT INFORMATION
  Report Type: Spontaneous
  Country: US (occurrence: US)
  Receive Date: 20140313
  Receipt Date: 20140321
  Transmission Date: 20141002
  Serious: Yes (Other)
  Sender: FDA-Public Use
  Company Number: US-BRISTOL-MYERS SQUIBB COMPANY-20232195

PATIENT
  Age: 61 Year
  Sex: Female
  Weight: 66.21 kg

DRUGS (2)
  1. BYDUREON [Suspect]
     Indication: TYPE 2 DIABETES MELLITUS
     Dosage: 5TH INJ WAS YESTERDAY
     Route: 058
  2. METFORMIN HCL TABS [Suspect]

REACTIONS (10)
  - Loss of consciousness [Unknown]
  - Malaise [Unknown]
  - Diarrhoea [Unknown]
  - Blood glucose increased [Unknown]
  - Injection site nodule [Unknown]
  - Injection site pruritus [Unknown]
  - Injection site extravasation [Unknown]
  - Wrong technique in drug usage process [Unknown]
  - Urticaria [Unknown]
  - Hypersensitivity [Unknown]
